FAERS Safety Report 8042105-2 (Version None)
Quarter: 2012Q1

REPORT INFORMATION
  Report Type: 
  Country: None (occurrence: None)
  Receive Date: 20120112
  Receipt Date: 20120102
  Transmission Date: 20120608
  Serious: Yes (Other)
  Sender: FDA-Public Use
  Company Number: FR-ELI_LILLY_AND_COMPANY-FR201201000086

PATIENT
  Sex: Male

DRUGS (7)
  1. REPAGLINIDE [Concomitant]
     Dosage: 1 MG, QD
  2. METFORMIN HCL [Concomitant]
     Dosage: UNK, BID
  3. NICARDIPINE HCL [Concomitant]
     Dosage: 50 MG, QD
     Route: 048
  4. JANUVIA [Concomitant]
     Dosage: 1000 MG, BID
  5. LANTUS [Concomitant]
     Dosage: 20 IU, QD
  6. VALSARTAN [Concomitant]
     Dosage: 160 MG, QD
  7. GEMZAR [Suspect]
     Dosage: UNK, WEEKLY FOR 3 FOLLOWED BY ONE WEEK REST
     Route: 042
     Dates: start: 20110523

REACTIONS (3)
  - MUSCLE HAEMORRHAGE [None]
  - PAIN IN EXTREMITY [None]
  - INFLAMMATION [None]
